FAERS Safety Report 8049787-X (Version None)
Quarter: 2012Q1

REPORT INFORMATION
  Report Type: 
  Country: None (occurrence: None)
  Receive Date: 20120117
  Receipt Date: 20120109
  Transmission Date: 20120608
  Serious: Yes (Hospitalization, Other)
  Sender: FDA-Public Use
  Company Number: IE-B.I. PHARMACEUTICALS,INC./RIDGEFIELD-2011-UK-00975UK

PATIENT
  Age: 28 Year
  Sex: Female

DRUGS (1)
  1. PRADAXA [Suspect]
     Indication: CAROTID ARTERY DISSECTION
     Dosage: 300 MG
     Route: 048
     Dates: start: 20110901

REACTIONS (3)
  - AORTIC ANEURYSM [None]
  - CAROTID ARTERY DISSECTION [None]
  - CEREBROVASCULAR ACCIDENT [None]
